FAERS Safety Report 9598361 (Version 1)
Quarter: 2013Q4

REPORT INFORMATION
  Report Type: Spontaneous
  Country: US (occurrence: US)
  Receive Date: 20131004
  Receipt Date: 20131004
  Transmission Date: 20140711
  Serious: No
  Sender: FDA-Public Use
  Company Number: US-AMGEN-USASP2013023366

PATIENT
  Age: 37 Year
  Sex: Female
  Weight: 94.33 kg

DRUGS (2)
  1. ENBREL [Suspect]
     Indication: PRODUCT USED FOR UNKNOWN INDICATION
     Dosage: 50 MG, TWICE WEEK FOR 3 MONTHS AND THEN 50 MG WEEKLY
     Route: 058
  2. MULTIVITAMINS, PLAIN [Concomitant]
     Dosage: UNK

REACTIONS (3)
  - Injection site erythema [Recovered/Resolved]
  - Injection site bruising [Recovered/Resolved]
  - Injection site swelling [Recovered/Resolved]
